FAERS Safety Report 5733097-7 (Version None)
Quarter: 2008Q2

REPORT INFORMATION
  Report Type: 
  Country: None (occurrence: None)
  Receive Date: 20080509
  Receipt Date: 20080424
  Transmission Date: 20081010
  Serious: Yes (Hospitalization, Other)
  Sender: FDA-Public Use
  Company Number: FR-ELI_LILLY_AND_COMPANY-FR200801001941

PATIENT
  Sex: Male
  Weight: 71.7 kg

DRUGS (1)
  1. HUMATROPE [Suspect]
     Indication: GROWTH HORMONE DEFICIENCY
     Dosage: 0.7 MG, DAILY (1/D)
     Route: 058
     Dates: start: 20041214, end: 20080108

REACTIONS (1)
  - MENINGIOMA [None]
